FAERS Safety Report 4829898-X (Version None)
Quarter: 2005Q4

REPORT INFORMATION
  Report Type: 
  Country: None (occurrence: None)
  Receive Date: 20051117
  Receipt Date: 20050928
  Transmission Date: 20060501
  Serious: Yes (Hospitalization)
  Sender: FDA-Public Use
  Company Number: US-SOLVAY-00205003087

PATIENT
  Age: 34 Year
  Sex: Female

DRUGS (4)
  1. MARINOL [Suspect]
     Indication: PAIN
     Dosage: DAILY DOSE: 20 MILLIGRAM(S)
     Route: 048
     Dates: start: 20050722, end: 20050722
  2. MARINOL [Suspect]
     Dosage: DAILY DOSE: 10 MILLIGRAM(S)
     Route: 048
     Dates: start: 20050812, end: 20050812
  3. MARINOL [Suspect]
     Dosage: DAILY DOSE: 20 MILLIGRAM(S)
     Route: 048
     Dates: start: 20050813, end: 20050829
  4. OPIOIDS [Concomitant]
     Indication: PAIN
     Dosage: DAILY DOSE:  UNKNOWN
     Route: 065

REACTIONS (3)
  - BACK PAIN [None]
  - PAIN [None]
  - PAIN IN EXTREMITY [None]
